FAERS Safety Report 8121315-X (Version None)
Quarter: 2012Q1

REPORT INFORMATION
  Report Type: 
  Country: None (occurrence: None)
  Receive Date: 20120208
  Receipt Date: 20120201
  Transmission Date: 20120608
  Serious: Yes (Death)
  Sender: FDA-Public Use
  Company Number: US-CELGENEUS-163-21880-11101539

PATIENT
  Sex: Male

DRUGS (8)
  1. CYPROHEPTADINE HCL [Concomitant]
     Dosage: 4 MILLIGRAM
     Route: 048
  2. ZOMETA [Concomitant]
     Dosage: 4MG/5ML
     Route: 041
  3. REVLIMID [Suspect]
     Indication: MULTIPLE MYELOMA
     Dosage: 25 MILLIGRAM
     Route: 048
     Dates: start: 20101104, end: 20110420
  4. CENTRUM [Concomitant]
     Route: 048
  5. HYDROMORPHONE HCL [Concomitant]
     Dosage: 4 MILLIGRAM
     Route: 048
  6. FERROUS SULFATE TAB [Concomitant]
     Dosage: 325 MILLIGRAM
     Route: 048
  7. MORPHINE [Concomitant]
     Dosage: 30 MILLIGRAM
     Route: 048
  8. PRILOSEC [Concomitant]
     Dosage: 20 MILLIGRAM
     Route: 048

REACTIONS (3)
  - HYPERCALCAEMIA [None]
  - RENAL FAILURE [None]
  - MULTIPLE MYELOMA [None]
